FAERS Safety Report 7105254-9 (Version None)
Quarter: 2010Q4

REPORT INFORMATION
  Report Type: 
  Country: None (occurrence: None)
  Receive Date: 20101116
  Receipt Date: 20101102
  Transmission Date: 20110411
  Serious: Yes (Hospitalization)
  Sender: FDA-Public Use
  Company Number: AT-CELGENEUS-009-21880-10110282

PATIENT
  Age: 61 Year
  Sex: Male
  Weight: 86 kg

DRUGS (2)
  1. REVLIMID [Suspect]
     Route: 048
     Dates: start: 20100122, end: 20101101
  2. MABTHERA [Suspect]
     Route: 051
     Dates: start: 20100122

REACTIONS (2)
  - ERYSIPELAS [None]
  - PANNICULITIS [None]
